FAERS Safety Report 22531716 (Version 1)
Quarter: 2023Q2

REPORT INFORMATION
  Report Type: Spontaneous
  Country: US (occurrence: US)
  Receive Date: 20230607
  Receipt Date: 20230607
  Transmission Date: 20230721
  Serious: Yes (Other)
  Sender: FDA-Public Use
  Company Number: US-drreddys-LIT/USA/23/0166322

PATIENT
  Age: 56 Year
  Sex: Male

DRUGS (5)
  1. BUDESONIDE [Suspect]
     Active Substance: BUDESONIDE
     Indication: Product used for unknown indication
  2. RIFAXIMIN [Suspect]
     Active Substance: RIFAXIMIN
     Indication: Diarrhoea
  3. RIFAXIMIN [Suspect]
     Active Substance: RIFAXIMIN
     Indication: Rectal haemorrhage
  4. MESALAMINE [Concomitant]
     Active Substance: MESALAMINE
     Indication: Diarrhoea
     Route: 054
  5. MESALAMINE [Concomitant]
     Active Substance: MESALAMINE
     Indication: Rectal haemorrhage

REACTIONS (5)
  - Waldenstrom^s macroglobulinaemia [Unknown]
  - Lymphoplasmacytoid lymphoma/immunocytoma [Unknown]
  - Irritable bowel syndrome [Unknown]
  - Disease recurrence [Unknown]
  - Drug ineffective [Unknown]
